FAERS Safety Report 20651301 (Version 5)
Quarter: 2022Q2

REPORT INFORMATION
  Report Type: Spontaneous
  Country: JP (occurrence: JP)
  Receive Date: 20220329
  Receipt Date: 20220517
  Transmission Date: 20220721
  Serious: No
  Sender: FDA-Public Use
  Company Number: JP-JNJFOC-20220343823

PATIENT
  Age: 98 Year
  Sex: Female
  Weight: 35 kg

DRUGS (1)
  1. SIMPONI [Suspect]
     Active Substance: GOLIMUMAB
     Indication: Rheumatoid arthritis
     Dosage: DOSE UNKNOWN.?STRENGTH: 50.00 MG / 0.50 ML
     Route: 058

REACTIONS (5)
  - Device defective [Unknown]
  - Device deployment issue [Recovered/Resolved]
  - Injury associated with device [Recovered/Resolved]
  - Injection site erythema [Unknown]
  - Needle issue [Unknown]

NARRATIVE: CASE EVENT DATE: 20220317
